FAERS Safety Report 4781732-2 (Version None)
Quarter: 2005Q3

REPORT INFORMATION
  Report Type: 
  Country: None (occurrence: None)
  Receive Date: 20050927
  Receipt Date: 20050914
  Transmission Date: 20060218
  Serious: Yes (Other)
  Sender: FDA-Public Use
  Company Number: S05-USA-04224-01

PATIENT
  Age: 50 Year
  Sex: Female
  Weight: 63.5036 kg

DRUGS (20)
  1. CAMPRAL [Suspect]
     Indication: BIPOLAR II DISORDER
     Dosage: 999 MG BID PO
     Route: 048
     Dates: start: 20050905, end: 20050908
  2. CAMPRAL [Suspect]
     Indication: OBSESSIVE-COMPULSIVE DISORDER
     Dosage: 999 MG BID PO
     Route: 048
     Dates: start: 20050905, end: 20050908
  3. GENTAMICIN [Suspect]
     Indication: INFECTION
     Dates: start: 20050801, end: 20050908
  4. GLYBURIDE [Concomitant]
  5. LOVASTATIN [Concomitant]
  6. LISINOPRIL [Concomitant]
  7. NEXIUM [Concomitant]
  8. AMBIEN [Concomitant]
  9. LUMIGAN [Concomitant]
  10. ELIDEL [Concomitant]
  11. AGGRENOX [Concomitant]
  12. PROZAC [Concomitant]
  13. PROVIGIL [Concomitant]
  14. CLONAZEPAM [Concomitant]
  15. ACTOS [Concomitant]
  16. RISPERDAL [Concomitant]
  17. METFORMIN [Concomitant]
  18. TEMAZEPAM [Concomitant]
  19. TRIAMCINOLONE [Concomitant]
  20. DIAZEPAM [Concomitant]

REACTIONS (1)
  - WHITE BLOOD CELL COUNT DECREASED [None]
